FAERS Safety Report 18638027 (Version 1)
Quarter: 2020Q4

REPORT INFORMATION
  Report Type: Spontaneous
  Country: US (occurrence: US)
  Receive Date: 20201219
  Receipt Date: 20201219
  Transmission Date: 20210114
  Serious: Yes (Other)
  Sender: FDA-Public Use
  Company Number: US-AUROBINDO-AUR-APL-2020-061574

PATIENT
  Age: 51 Year
  Sex: Male

DRUGS (1)
  1. AMPICILLIN AND SALBUCTAM [Suspect]
     Active Substance: AMPICILLIN SODIUM\SULBACTAM SODIUM
     Indication: CELLULITIS
     Dosage: UNK
     Route: 065

REACTIONS (8)
  - Neutrophilia [Unknown]
  - Leukocytosis [Unknown]
  - Blood urea increased [Unknown]
  - Toxic epidermal necrolysis [Recovering/Resolving]
  - Stevens-Johnson syndrome [Recovering/Resolving]
  - Acute generalised exanthematous pustulosis [Recovering/Resolving]
  - Blood creatinine increased [Unknown]
  - Hypernatraemia [Unknown]
